FAERS Safety Report 4490096-3 (Version None)
Quarter: 2004Q4

REPORT INFORMATION
  Report Type: 
  Country: None (occurrence: None)
  Receive Date: 20041027
  Receipt Date: 20041022
  Transmission Date: 20050328
  Serious: Yes (Other)
  Sender: FDA-Public Use
  Company Number: 2004236624US

PATIENT
  Age: 43 Year
  Sex: Female
  Weight: 74.8 kg

DRUGS (2)
  1. DEPO-PROVERA [Suspect]
     Indication: CONTRACEPTION
     Dosage: 150 MG, FIRST INJECTION, INTRAMUSCULAR
     Route: 030
     Dates: start: 19940101, end: 19940101
  2. VALTREX [Concomitant]

REACTIONS (7)
  - FAT NECROSIS [None]
  - INJECTION SITE ATROPHY [None]
  - INJECTION SITE INDURATION [None]
  - INJECTION SITE NECROSIS [None]
  - INJECTION SITE REACTION [None]
  - INJECTION SITE SCAR [None]
  - TENDERNESS [None]
